FAERS Safety Report 7760762-2 (Version None)
Quarter: 2011Q3

REPORT INFORMATION
  Report Type: 
  Country: None (occurrence: None)
  Receive Date: 20110919
  Receipt Date: 20110908
  Transmission Date: 20111222
  Serious: Yes (Other)
  Sender: FDA-Public Use
  Company Number: US-ASTRAZENECA-2011SE54368

PATIENT

DRUGS (1)
  1. SEROQUEL [Suspect]
     Route: 048

REACTIONS (5)
  - UNRESPONSIVE TO STIMULI [None]
  - BRADYCARDIA [None]
  - DRUG PRESCRIBING ERROR [None]
  - HYPOTENSION [None]
  - DRUG DOSE OMISSION [None]
